FAERS Safety Report 19034474 (Version 1)
Quarter: 2021Q1

REPORT INFORMATION
  Report Type: Spontaneous
  Country: CA (occurrence: CA)
  Receive Date: 20210319
  Receipt Date: 20210319
  Transmission Date: 20210420
  Serious: Yes (Hospitalization)
  Sender: FDA-Public Use
  Company Number: CA-TEVA-2021-CA-1891241

PATIENT
  Age: 56 Year
  Sex: Female

DRUGS (10)
  1. CARBAMAZEPINE. [Suspect]
     Active Substance: CARBAMAZEPINE
     Indication: PRODUCT USED FOR UNKNOWN INDICATION
     Route: 065
  2. DILAUDID [Concomitant]
     Active Substance: HYDROMORPHONE HYDROCHLORIDE
  3. PREGABALIN. [Concomitant]
     Active Substance: PREGABALIN
  4. SENOKOT [Concomitant]
     Active Substance: SENNOSIDES
  5. SERTRALINE HYDROCHLORIDE. [Concomitant]
     Active Substance: SERTRALINE HYDROCHLORIDE
  6. CLONAZEPAM. [Concomitant]
     Active Substance: CLONAZEPAM
  7. MISOPROSTOL. [Concomitant]
     Active Substance: MISOPROSTOL
  8. SILDENAFIL CITRATE. [Interacting]
     Active Substance: SILDENAFIL CITRATE
     Indication: PULMONARY ARTERIAL HYPERTENSION
     Dosage: 60 MILLIGRAM DAILY;
     Route: 048
  9. HYDROMORPH CONTIN [Concomitant]
     Active Substance: HYDROMORPHONE
  10. LASIX [Concomitant]
     Active Substance: FUROSEMIDE

REACTIONS (3)
  - Blood iron decreased [Unknown]
  - Haemoglobin decreased [Unknown]
  - Drug interaction [Unknown]
